FAERS Safety Report 20869526 (Version 3)
Quarter: 2022Q2

REPORT INFORMATION
  Report Type: Report from Study
  Country: AU (occurrence: AU)
  Receive Date: 20220524
  Receipt Date: 20220612
  Transmission Date: 20220721
  Serious: Yes (Hospitalization, Other)
  Sender: FDA-Public Use
  Company Number: AU-ABBVIE-22K-008-4407145-00

PATIENT
  Sex: Male

DRUGS (2)
  1. CARBIDOPA\LEVODOPA [Suspect]
     Active Substance: CARBIDOPA\LEVODOPA
     Indication: Parkinson^s disease
     Route: 050
     Dates: start: 20190509
  2. CARBIDOPA\LEVODOPA [Suspect]
     Active Substance: CARBIDOPA\LEVODOPA

REACTIONS (9)
  - Gastrointestinal pain [Not Recovered/Not Resolved]
  - Small intestinal obstruction [Unknown]
  - Gastritis [Unknown]
  - Device issue [Unknown]
  - Device occlusion [Unknown]
  - Parkinson^s disease [Unknown]
  - Stoma site hypergranulation [Unknown]
  - Duodenal ulcer [Unknown]
  - Bezoar [Unknown]

NARRATIVE: CASE EVENT DATE: 20220101
